FAERS Safety Report 5309810-X (Version None)
Quarter: 2007Q2

REPORT INFORMATION
  Report Type: 
  Country: None (occurrence: None)
  Receive Date: 20070427
  Receipt Date: 20070122
  Transmission Date: 20071010
  Serious: No
  Sender: FDA-Public Use
  Company Number: US-GLAXOSMITHKLINE-A0636542A

PATIENT
  Age: 4 Year
  Sex: Female

DRUGS (1)
  1. ZOFRAN [Suspect]
     Indication: GASTROENTERITIS
     Dosage: 2MG UNKNOWN
     Route: 048
     Dates: start: 20070117, end: 20070120

REACTIONS (2)
  - PRURITUS [None]
  - RASH [None]
